FAERS Safety Report 7184398-X (Version None)
Quarter: 2010Q4

REPORT INFORMATION
  Report Type: 
  Country: None (occurrence: None)
  Receive Date: 20101123
  Receipt Date: 20100913
  Transmission Date: 20110411
  Serious: No
  Sender: FDA-Public Use
  Company Number: 018777

PATIENT
  Sex: Female
  Weight: 77.1 kg

DRUGS (8)
  1. CIMZIA [Suspect]
     Indication: CROHN'S DISEASE
     Dosage: 400 MG, FREQUENCY EVERY 2 WEEKS, THEN MONTHLY SUBCUTANEOUS
     Route: 058
     Dates: start: 20100913
  2. METHORTEXATE [Concomitant]
  3. VITAMIN D [Concomitant]
  4. FOLIC ACID [Concomitant]
  5. ZYRTEC [Concomitant]
  6. VITAMIN B12 NOS [Concomitant]
  7. ALBUTEROL [Concomitant]
  8. KLONOPIN [Concomitant]

REACTIONS (2)
  - INJECTION SITE SWELLING [None]
  - RASH [None]
